FAERS Safety Report 24560296 (Version 5)
Quarter: 2024Q4

REPORT INFORMATION
  Report Type: Report from Study
  Country: TH (occurrence: TH)
  Receive Date: 20241029
  Receipt Date: 20241226
  Transmission Date: 20250114
  Serious: Yes (Hospitalization)
  Sender: EMD SERONO INC
  Company Number: TH-Merck Healthcare KGaA-2024056746

PATIENT
  Sex: Male

DRUGS (1)
  1. SAIZEN [Suspect]
     Active Substance: SOMATROPIN
     Indication: Product used for unknown indication
     Dates: start: 20241018

REACTIONS (13)
  - Dizziness [Unknown]
  - Vomiting [Unknown]
  - Bone pain [Unknown]
  - Oropharyngeal pain [Unknown]
  - Hand-foot-and-mouth disease [Unknown]
  - Pyrexia [Unknown]
  - Muscle strain [Unknown]
  - Fatigue [Unknown]
  - Pain [Unknown]
  - Headache [Unknown]
  - Rash [Unknown]
  - Infection [Unknown]
  - Nausea [Recovering/Resolving]

NARRATIVE: CASE EVENT DATE: 20241105
